FAERS Safety Report 5293351-2 (Version None)
Quarter: 2007Q2

REPORT INFORMATION
  Report Type: 
  Country: None (occurrence: None)
  Receive Date: 20070411
  Receipt Date: 20070405
  Transmission Date: 20071010
  Serious: Yes (Life-Threatening)
  Sender: FDA-Public Use
  Company Number: US-MERCK-0704USA00952

PATIENT
  Age: 69 Year
  Sex: Female
  Weight: 116 kg

DRUGS (5)
  1. JANUVIA [Suspect]
     Route: 048
  2. TOPROL-XL [Concomitant]
     Indication: ANGINA PECTORIS
     Route: 048
  3. ALTACE [Concomitant]
     Indication: ANGINA PECTORIS
     Route: 048
  4. ALTACE [Concomitant]
     Indication: DIABETES MELLITUS
     Route: 048
  5. LEXAPRO [Concomitant]
     Indication: DEPRESSION
     Route: 048

REACTIONS (1)
  - DEPRESSION [None]
